FAERS Safety Report 5453971-9 (Version None)
Quarter: 2007Q3

REPORT INFORMATION
  Report Type: 
  Country: None (occurrence: None)
  Receive Date: 20070917
  Receipt Date: 20070228
  Transmission Date: 20080115
  Serious: Yes (Disabling, Other)
  Sender: FDA-Public Use
  Company Number: US-ASTRAZENECA-2006UW00874

PATIENT
  Sex: Male
  Weight: 90.9 kg

DRUGS (9)
  1. SEROQUEL [Suspect]
     Indication: DEPRESSION
     Dates: start: 20020101, end: 20050101
  2. SEROQUEL [Suspect]
     Indication: BIPOLAR DISORDER
     Dates: start: 20020101, end: 20050101
  3. SEROQUEL [Suspect]
     Route: 048
     Dates: start: 20030201, end: 20061204
  4. SEROQUEL [Suspect]
     Route: 048
     Dates: start: 20030201, end: 20061204
  5. ZYPREXA [Suspect]
     Dates: start: 20021012
  6. HALDOL [Suspect]
     Dates: start: 20021012
  7. LITHIUM [Concomitant]
  8. WELLBUTRIN [Concomitant]
  9. ABILIFY [Concomitant]

REACTIONS (3)
  - DIABETIC KETOACIDOSIS [None]
  - TYPE 2 DIABETES MELLITUS [None]
  - WEIGHT INCREASED [None]
